FAERS Safety Report 11805675 (Version 4)
Quarter: 2016Q2

REPORT INFORMATION
  Report Type: Spontaneous
  Country: JP (occurrence: JP)
  Receive Date: 20151207
  Receipt Date: 20160404
  Transmission Date: 20160815
  Serious: Yes (Other)
  Sender: FDA-Public Use
  Company Number: JP-ACCORD-036027

PATIENT
  Age: 15 Year
  Sex: Male
  Weight: 60.1 kg

DRUGS (12)
  1. FLUCONAZOLE. [Concomitant]
     Active Substance: FLUCONAZOLE
     Indication: FUNGAL INFECTION
     Route: 048
  2. MESNA. [Concomitant]
     Active Substance: MESNA
     Indication: CYSTITIS HAEMORRHAGIC
     Dosage: DAY 1 IN VDC CHEMOTHERAPY AND ON DAYS 1 - 5 IN IE CHEMOTHERAPY
     Route: 042
  3. ETOPOSIDE. [Suspect]
     Active Substance: ETOPOSIDE
     Indication: RHABDOMYOSARCOMA
     Dosage: 160 MG/BODY, DAYS 1 - 5
     Route: 042
  4. CYCLOPHOSPHAMIDE/CYCLOPHOSPHAMIDE MONOHYDRATE [Concomitant]
     Indication: RHABDOMYOSARCOMA
     Dosage: 1,900 MG/BODY,
     Route: 042
  5. DOXORUBICIN [Concomitant]
     Active Substance: DOXORUBICIN
     Indication: RHABDOMYOSARCOMA
     Dosage: 60 MG/BODY
     Route: 042
  6. DEXAMETHASONE. [Concomitant]
     Active Substance: DEXAMETHASONE
     Indication: SUPPORTIVE CARE
     Route: 042
  7. WARFARIN [Interacting]
     Active Substance: WARFARIN
     Indication: CEREBRAL ARTERY OCCLUSION
     Dosage: DURING THE FIRST CYCLE OF VDC CHEMOTHERAPY
     Route: 048
  8. ONDANSETRON [Concomitant]
     Active Substance: ONDANSETRON
     Indication: SUPPORTIVE CARE
     Route: 042
  9. IFOSFAMIDE. [Interacting]
     Active Substance: IFOSFAMIDE
     Indication: RHABDOMYOSARCOMA
     Dosage: 2,900 MG/BODY, ON DAYS 1 - 5
     Route: 042
  10. APREPITANT. [Concomitant]
     Active Substance: APREPITANT
     Indication: NAUSEA
     Dosage: 125 MG ON DAY 1 AND 80 MG ON DAYS 2 AND 3
  11. VINCRISTINE [Concomitant]
     Active Substance: VINCRISTINE
     Indication: RHABDOMYOSARCOMA
     Dosage: 2 MG/BODY
     Route: 042
  12. FAMOTIDINE. [Concomitant]
     Active Substance: FAMOTIDINE
     Indication: SUPPORTIVE CARE
     Route: 042

REACTIONS (3)
  - Drug interaction [Unknown]
  - Cytopenia [Unknown]
  - International normalised ratio increased [Recovered/Resolved]
